FAERS Safety Report 25858600 (Version 1)
Quarter: 2025Q3

REPORT INFORMATION
  Report Type: Spontaneous
  Country: US (occurrence: US)
  Receive Date: 20250929
  Receipt Date: 20250929
  Transmission Date: 20251020
  Serious: No
  Sender: STRIDES
  Company Number: US-STRIDES ARCOLAB LIMITED-2025SP002370

PATIENT
  Age: 47 Year
  Sex: Female

DRUGS (4)
  1. PREDNISOLONE [Suspect]
     Active Substance: PREDNISOLONE
     Indication: Mesenteric panniculitis
     Route: 065
  2. TAMOXIFEN [Suspect]
     Active Substance: TAMOXIFEN
     Indication: Mesenteric panniculitis
     Route: 065
  3. NELVUTAMIG [Concomitant]
     Active Substance: NELVUTAMIG
     Indication: Metastatic malignant melanoma
     Route: 065
  4. NIVOLUMAB [Concomitant]
     Active Substance: NIVOLUMAB
     Indication: Metastatic malignant melanoma
     Route: 065

REACTIONS (1)
  - Drug ineffective for unapproved indication [Unknown]
